FAERS Safety Report 5627215-9 (Version None)
Quarter: 2008Q1

REPORT INFORMATION
  Report Type: 
  Country: None (occurrence: None)
  Receive Date: 20080128
  Receipt Date: 20071002
  Transmission Date: 20080703
  Serious: Yes (Hospitalization)
  Sender: FDA-Public Use
  Company Number: CLOF-10697

PATIENT
  Age: 59 Year
  Sex: Male

DRUGS (1)
  1. CLOLAR [Suspect]
     Indication: ACUTE MYELOID LEUKAEMIA
     Dosage: QDX5, INTRAVENOUS
     Route: 042

REACTIONS (2)
  - NEUTROPENIA [None]
  - RASH PRURITIC [None]
